FAERS Safety Report 9030296 (Version 1)
Quarter: 2013Q1

REPORT INFORMATION
  Report Type: Report from Study
  Country: AU (occurrence: AU)
  Receive Date: 20130122
  Receipt Date: 20130122
  Transmission Date: 20140127
  Serious: Yes (Other)
  Sender: FDA-Public Use
  Company Number: AU-ROCHE-1178340

PATIENT
  Age: 19 Year
  Sex: Male

DRUGS (5)
  1. PEG-INTERFERON ALFA 2A [Suspect]
     Indication: CHRONIC HEPATITIS B
     Route: 058
     Dates: start: 20120725
  2. TENOFOVIR DISOPROXIL FUMARATE [Suspect]
     Indication: CHRONIC HEPATITIS B
     Route: 048
     Dates: start: 20120725
  3. PARACETAMOL [Concomitant]
     Route: 065
     Dates: start: 20120725
  4. OPTIVE LUBRICANT EYE DROPS [Concomitant]
     Route: 065
     Dates: start: 20120823
  5. VASELINE CREAM [Concomitant]

REACTIONS (1)
  - Hepatitis [Recovered/Resolved]
